FAERS Safety Report 17118293 (Version 1)
Quarter: 2019Q4

REPORT INFORMATION
  Report Type: Report from Study
  Country: US (occurrence: US)
  Receive Date: 20191205
  Receipt Date: 20191205
  Transmission Date: 20200122
  Serious: No
  Sender: FDA-Public Use
  Company Number: NVSC2019US054101

PATIENT
  Sex: Female

DRUGS (2)
  1. AFINITOR [Suspect]
     Active Substance: EVEROLIMUS
     Indication: TUBEROUS SCLEROSIS COMPLEX
     Dosage: 2.5 MG, QD
     Route: 048
     Dates: start: 20191008
  2. AFINITOR [Suspect]
     Active Substance: EVEROLIMUS
     Indication: PARTIAL SEIZURES

REACTIONS (1)
  - Fatigue [Unknown]
